FAERS Safety Report 6267608-2 (Version None)
Quarter: 2009Q3

REPORT INFORMATION
  Report Type: 
  Country: None (occurrence: None)
  Receive Date: 20090714
  Receipt Date: 20090706
  Transmission Date: 20100115
  Serious: Yes (Hospitalization)
  Sender: FDA-Public Use
  Company Number: US-ELI_LILLY_AND_COMPANY-US200907000977

PATIENT
  Sex: Female

DRUGS (4)
  1. FORTEO [Suspect]
     Dates: start: 20080101
  2. CYMBALTA [Concomitant]
  3. CALCIUM                                 /N/A/ [Concomitant]
  4. MULTI-VITAMIN [Concomitant]

REACTIONS (1)
  - NEPHROLITHIASIS [None]
